FAERS Safety Report 8445811-0 (Version None)
Quarter: 2012Q2

REPORT INFORMATION
  Report Type: 
  Country: None (occurrence: None)
  Receive Date: 20120614
  Receipt Date: 20120517
  Transmission Date: 20120825
  Serious: Yes (Hospitalization)
  Sender: FDA-Public Use
  Company Number: 20120510

PATIENT
  Sex: Female
  Weight: 57.7 kg

DRUGS (16)
  1. COENZYME [Concomitant]
  2. B-VITAMIN COMPLEX [Concomitant]
  3. GARLIC TABLET [Concomitant]
  4. ACIDOPHILUS PROBIOTICS [Concomitant]
  5. GLUCOSAMINE-MSM-CHONDROITIN [Concomitant]
  6. SARNA CREAM TOPICAL [Concomitant]
  7. PANTOPRAZOLE [Concomitant]
  8. MULTI-VITAMIN [Concomitant]
  9. COMPLETE EFA [Concomitant]
  10. MIFEPRISTONE (MIFEPREX) [Suspect]
     Indication: CUSHING'S SYNDROME
     Dosage: 600MG QOD PO
     Route: 048
     Dates: start: 20100628
  11. BENADRYL [Concomitant]
  12. GRAPE SEED EXTRACT [Concomitant]
  13. COZAAR [Concomitant]
  14. EVENING PRIMROSE OIL [Concomitant]
  15. C-VITAMIN [Concomitant]
  16. CALCIUM MAGNESIUM ZINC [Concomitant]

REACTIONS (5)
  - MUSCULAR WEAKNESS [None]
  - NAUSEA [None]
  - HEADACHE [None]
  - MALAISE [None]
  - CEREBRAL INFARCTION [None]
